FAERS Safety Report 6916681-4 (Version None)
Quarter: 2010Q3

REPORT INFORMATION
  Report Type: 
  Country: None (occurrence: None)
  Receive Date: 20100809
  Receipt Date: 20100809
  Transmission Date: 20110219
  Serious: Yes (Death)
  Sender: FDA-Public Use
  Company Number: None

PATIENT
  Age: 83 Year
  Sex: Female
  Weight: 80.7403 kg

DRUGS (1)
  1. BYETTA [Suspect]
     Indication: DIABETES MELLITUS
     Dosage: 5MCG BID SUBCUTANEOUS 057
     Route: 058
     Dates: start: 20100520, end: 20100723

REACTIONS (6)
  - BACK PAIN [None]
  - BLOOD GLUCOSE INCREASED [None]
  - HAEMORRHAGE [None]
  - NO THERAPEUTIC RESPONSE [None]
  - RENAL FAILURE [None]
  - SMALL INTESTINAL OBSTRUCTION [None]
